FAERS Safety Report 7261902-4 (Version None)
Quarter: 2011Q1

REPORT INFORMATION
  Report Type: 
  Country: None (occurrence: None)
  Receive Date: 20110130
  Receipt Date: 20101212
  Transmission Date: 20110831
  Serious: No
  Sender: FDA-Public Use
  Company Number: US-ABBOTT-10P-163-0691022-00

PATIENT
  Age: 45 Year
  Sex: Male

DRUGS (3)
  1. ALEVE [Concomitant]
     Indication: PAIN
     Dosage: 2 TABS DAILY
  2. HUMIRA [Suspect]
     Indication: PSORIASIS
     Dates: start: 20101001
  3. ALEVE [Concomitant]

REACTIONS (1)
  - INJECTION SITE PAIN [None]
